FAERS Safety Report 14356397 (Version 1)
Quarter: 2018Q1

REPORT INFORMATION
  Report Type: Spontaneous
  Country: US (occurrence: US)
  Receive Date: 20180105
  Receipt Date: 20180105
  Transmission Date: 20180509
  Serious: No
  Sender: FDA-Public Use
  Company Number: US-ALLERGAN-1720553US

PATIENT
  Sex: Female

DRUGS (1)
  1. KYBELLA [Suspect]
     Active Substance: DEOXYCHOLIC ACID
     Indication: PRODUCT USED FOR UNKNOWN INDICATION
     Dosage: 4CC USED/2 VIALS, SINGLE
     Route: 058
     Dates: start: 20170316, end: 20170316

REACTIONS (3)
  - Swelling [Not Recovered/Not Resolved]
  - Hypoaesthesia [Not Recovered/Not Resolved]
  - Paraesthesia [Not Recovered/Not Resolved]
